FAERS Safety Report 4380954-2 (Version None)
Quarter: 2004Q2

REPORT INFORMATION
  Report Type: 
  Country: None (occurrence: None)
  Receive Date: 20040614
  Receipt Date: 20040608
  Transmission Date: 20050107
  Serious: Yes (Life-Threatening, Hospitalization)
  Sender: FDA-Public Use
  Company Number: STA-AE-04-MTX-255

PATIENT
  Age: 58 Year
  Sex: Female

DRUGS (1)
  1. METHOTREXATE [Suspect]
     Indication: PSORIASIS
     Dosage: 5 MG, THREE TIMES PER WEEK, ORAL
     Route: 048
     Dates: start: 19790101, end: 20040201

REACTIONS (3)
  - ANORECTAL DISORDER [None]
  - BLADDER DISORDER [None]
  - INFECTION [None]
